FAERS Safety Report 7490827-4 (Version None)
Quarter: 2011Q2

REPORT INFORMATION
  Report Type: 
  Country: None (occurrence: None)
  Receive Date: 20110519
  Receipt Date: 20110504
  Transmission Date: 20111010
  Serious: No
  Sender: FDA-Public Use
  Company Number: US-B.I. PHARMACEUTICALS,INC./RIDGEFIELD-2011-BP-12512BP

PATIENT
  Sex: Female

DRUGS (5)
  1. REQUIP [Concomitant]
     Indication: PARKINSON'S DISEASE
     Dates: start: 20090101
  2. STALEVO 100 [Concomitant]
     Indication: PARKINSON'S DISEASE
     Dates: start: 20090101
  3. SINGULAIR [Concomitant]
     Indication: CHRONIC OBSTRUCTIVE PULMONARY DISEASE
     Dates: start: 20090101
  4. RAZADYNE [Concomitant]
     Indication: AMNESIA
     Dates: start: 20090101
  5. SPIRIVA [Suspect]
     Indication: CHRONIC OBSTRUCTIVE PULMONARY DISEASE
     Dosage: 18 MCG
     Route: 055
     Dates: start: 20110501, end: 20110503

REACTIONS (3)
  - INSOMNIA [None]
  - VISION BLURRED [None]
  - CYSTITIS [None]
